FAERS Safety Report 9134849 (Version 1)
Quarter: 2013Q1

REPORT INFORMATION
  Report Type: Spontaneous
  Country: US (occurrence: US)
  Receive Date: 20130304
  Receipt Date: 20130304
  Transmission Date: 20140127
  Serious: Yes (Other)
  Sender: FDA-Public Use
  Company Number: US-PFIZER INC-2013072613

PATIENT
  Sex: Female

DRUGS (1)
  1. PRISTIQ [Suspect]
     Dosage: UNK

REACTIONS (6)
  - Drug dependence [Unknown]
  - Dizziness [Unknown]
  - Tremor [Unknown]
  - Feeling abnormal [Unknown]
  - Migraine [Unknown]
  - Headache [Unknown]
